FAERS Safety Report 5168159-9 (Version None)
Quarter: 2006Q4

REPORT INFORMATION
  Report Type: 
  Country: None (occurrence: None)
  Receive Date: 20061208
  Receipt Date: 20040824
  Transmission Date: 20070319
  Serious: Yes (Hospitalization, Disabling, Other)
  Sender: FDA-Public Use
  Company Number: US-PURDUE-USA_2004_0016540

PATIENT
  Age: 30 Year
  Sex: Male

DRUGS (7)
  1. OXYCONTIN [Suspect]
     Indication: PAIN
     Dosage: 20 MG, Q12H
     Route: 065
     Dates: start: 20011204
  2. XANAX [Concomitant]
     Indication: DRUG USE FOR UNKNOWN INDICATION
     Dosage: 1 MG, TID
     Route: 048
  3. PEPCID [Concomitant]
     Indication: DRUG USE FOR UNKNOWN INDICATION
     Dosage: 40 MG, UNK
     Route: 065
  4. PAXIL [Concomitant]
     Indication: DRUG USE FOR UNKNOWN INDICATION
     Dosage: 20 MG, UNK
  5. LOTRISONE [Concomitant]
     Indication: DRUG USE FOR UNKNOWN INDICATION
     Dosage: UNK, UNK
     Route: 065
  6. ULTRAM [Concomitant]
     Indication: ANALGESIC EFFECT
     Dosage: 750 MG, UNK
  7. SOMA [Concomitant]
     Indication: ANALGESIC EFFECT
     Dosage: 750 MG, UNK

REACTIONS (35)
  - ALEXIA [None]
  - ANOXIC ENCEPHALOPATHY [None]
  - ANXIETY [None]
  - BLINDNESS [None]
  - BLUNTED AFFECT [None]
  - COGNITIVE DISORDER [None]
  - COMA [None]
  - DRUG DEPENDENCE [None]
  - DRUG INEFFECTIVE [None]
  - EMOTIONAL DISTRESS [None]
  - GAIT DISTURBANCE [None]
  - HEMIPARESIS [None]
  - HYPOACUSIS [None]
  - HYPOKINESIA [None]
  - HYPOXIC ENCEPHALOPATHY [None]
  - INADEQUATE ANALGESIA [None]
  - INJURY [None]
  - INTENTIONAL DRUG MISUSE [None]
  - MENTAL IMPAIRMENT [None]
  - NAUSEA [None]
  - OVERDOSE [None]
  - PAIN [None]
  - PHYSICAL DISABILITY [None]
  - PNEUMONIA ASPIRATION [None]
  - PYREXIA [None]
  - READING DISORDER [None]
  - RENAL FAILURE [None]
  - RESPIRATORY FAILURE [None]
  - SCAR [None]
  - SEPSIS [None]
  - SINUS TACHYCARDIA [None]
  - SUICIDE ATTEMPT [None]
  - VISION BLURRED [None]
  - VISUAL ACUITY REDUCED [None]
  - VISUAL FIELD DEFECT [None]
